FAERS Safety Report 5019881-6 (Version None)
Quarter: 2006Q2

REPORT INFORMATION
  Report Type: 
  Country: None (occurrence: None)
  Receive Date: 20060607
  Receipt Date: 20060529
  Transmission Date: 20061013
  Serious: Yes (Hospitalization)
  Sender: FDA-Public Use
  Company Number: PHBS2006DE07892

PATIENT
  Age: 35 Year

DRUGS (7)
  1. CALCIUM ACETATE [Suspect]
  2. OMEPRAZOL [Suspect]
  3. CALCITRIOL [Suspect]
  4. ALGELDRATE [Suspect]
  5. OXAZEPAM [Suspect]
  6. WARFARIN SODIUM [Suspect]
  7. METOPROLOL [Suspect]

REACTIONS (11)
  - BLOOD CALCIUM INCREASED [None]
  - BLOOD CREATININE INCREASED [None]
  - BLOOD PARATHYROID HORMONE INCREASED [None]
  - BLOOD PHOSPHORUS INCREASED [None]
  - CALCIPHYLAXIS [None]
  - DISEASE PROGRESSION [None]
  - PAIN [None]
  - PURPURA [None]
  - SKIN INFLAMMATION [None]
  - SKIN NECROSIS [None]
  - THROMBOSIS [None]
